FAERS Safety Report 16470560 (Version 1)
Quarter: 2019Q2

REPORT INFORMATION
  Report Type: Spontaneous
  Country: US (occurrence: US)
  Receive Date: 20190624
  Receipt Date: 20190624
  Transmission Date: 20190711
  Serious: No
  Sender: FDA-Public Use
  Company Number: US-IPSEN BIOPHARMACEUTICALS, INC.-2019-10553

PATIENT
  Age: 41 Year
  Sex: Female

DRUGS (4)
  1. DYSPORT [Suspect]
     Active Substance: ABOBOTULINUMTOXINA
     Indication: SKIN WRINKLING
  2. DYSPORT [Suspect]
     Active Substance: ABOBOTULINUMTOXINA
     Indication: SKIN WRINKLING
     Dosage: 100 UNITS (GLABELLAR REGION (HIGHER GLABELLAR REGION) 45UNITS, HIGHER FOREHEAD (10UNITS), NASALIS 15
     Dates: start: 20190530, end: 20190530
  3. DYSPORT [Suspect]
     Active Substance: ABOBOTULINUMTOXINA
     Indication: SKIN WRINKLING
  4. DYSPORT [Suspect]
     Active Substance: ABOBOTULINUMTOXINA
     Indication: OFF LABEL USE

REACTIONS (4)
  - Off label use [Unknown]
  - Eyelid oedema [Not Recovered/Not Resolved]
  - Product preparation error [Unknown]
  - Periorbital swelling [Not Recovered/Not Resolved]

NARRATIVE: CASE EVENT DATE: 20190530
